FAERS Safety Report 6177237-7 (Version None)
Quarter: 2009Q2

REPORT INFORMATION
  Report Type: 
  Country: None (occurrence: None)
  Receive Date: 20090504
  Receipt Date: 20090428
  Transmission Date: 20091009
  Serious: Yes (Death, Other)
  Sender: FDA-Public Use
  Company Number: FR-CELGENEUS-056-21880-09042445

PATIENT

DRUGS (1)
  1. REVLIMID [Suspect]
     Route: 048

REACTIONS (16)
  - CARDIAC FAILURE [None]
  - CELLULITIS [None]
  - CEREBRAL HAEMORRHAGE [None]
  - COLITIS ISCHAEMIC [None]
  - COMPLETED SUICIDE [None]
  - DISEASE PROGRESSION [None]
  - HAEMORRHAGE [None]
  - NEUTROPENIA [None]
  - PANCYTOPENIA [None]
  - PNEUMONIA [None]
  - PULMONARY EMBOLISM [None]
  - PYREXIA [None]
  - SEPSIS [None]
  - THROMBOCYTOPENIA [None]
  - THROMBOSIS [None]
  - TOOTH ABSCESS [None]
